FAERS Safety Report 8221925-5 (Version None)
Quarter: 2012Q1

REPORT INFORMATION
  Report Type: 
  Country: None (occurrence: None)
  Receive Date: 20120320
  Receipt Date: 20120312
  Transmission Date: 20120608
  Serious: Yes (Other)
  Sender: FDA-Public Use
  Company Number: CA-JNJFOC-20120305033

PATIENT
  Sex: Male
  Weight: 101 kg

DRUGS (8)
  1. REMICADE [Suspect]
     Indication: CROHN'S DISEASE
     Route: 042
     Dates: start: 20040101
  2. PULMICORT [Concomitant]
     Dosage: PUFFS BID
     Route: 065
  3. ASCORBIC ACID [Concomitant]
     Route: 065
  4. FLAX SEED OIL [Concomitant]
     Route: 065
  5. CALCIUM CARBONATE [Concomitant]
     Route: 065
  6. VITAMIN B COMPLEX CAP [Concomitant]
     Route: 065
  7. VITAMIN D [Concomitant]
     Route: 065
  8. PRILOSEC [Concomitant]
     Route: 048

REACTIONS (1)
  - INTERVERTEBRAL DISC PROTRUSION [None]
